FAERS Safety Report 9922988 (Version 1)
Quarter: 2014Q1

REPORT INFORMATION
  Report Type: Spontaneous
  Country: US (occurrence: US)
  Receive Date: 20140225
  Receipt Date: 20140225
  Transmission Date: 20141002
  Serious: No
  Sender: FDA-Public Use
  Company Number: US-AMGEN-USASP2013066938

PATIENT
  Age: 51 Year
  Sex: Male
  Weight: 113.83 kg

DRUGS (11)
  1. ENBREL [Suspect]
     Indication: PRODUCT USED FOR UNKNOWN INDICATION
     Dosage: 50 MG, QWK
     Route: 058
  2. METHOTREXATE [Concomitant]
     Dosage: 2.5 MG, UNK
  3. FOLIC ACID [Concomitant]
     Dosage: UNK
  4. MOTRIN [Concomitant]
     Dosage: 800 MG, UNK
  5. FLEXERIL                           /00428402/ [Concomitant]
     Dosage: 10 MG, UNK
  6. VITAMIN C                          /00008001/ [Concomitant]
     Dosage: 500 MG, UNK
  7. OMEGA 3                            /01334101/ [Concomitant]
     Dosage: 1000 MG, UNK
  8. CO Q 10                            /00517201/ [Concomitant]
     Dosage: UNK
  9. VITAMIN D3 [Concomitant]
     Dosage: 2000 UNIT, UNK
  10. VITAMIN B-12 [Concomitant]
     Dosage: UNK
  11. CELEBREX [Concomitant]
     Dosage: 50 MG, UNK

REACTIONS (1)
  - Injection site bruising [Unknown]
